FAERS Safety Report 5110706-7 (Version None)
Quarter: 2006Q3

REPORT INFORMATION
  Report Type: 
  Country: None (occurrence: None)
  Receive Date: 20060921
  Receipt Date: 20060913
  Transmission Date: 20061208
  Serious: Yes (Life-Threatening, Hospitalization)
  Sender: FDA-Public Use
  Company Number: EG-MERCK-0609USA03037

PATIENT
  Age: 67 Year
  Sex: Male

DRUGS (7)
  1. ZETIA [Suspect]
     Route: 048
  2. LANOXIN [Concomitant]
     Route: 048
  3. LASIX [Concomitant]
     Route: 048
  4. COVERSYL [Concomitant]
     Route: 048
  5. DILATREND [Concomitant]
     Route: 048
  6. COUMADIN [Concomitant]
     Route: 048
  7. PRAVASTATIN SODIUM [Suspect]
     Route: 065

REACTIONS (4)
  - BLOOD CREATININE INCREASED [None]
  - HEPATITIS [None]
  - INTERNATIONAL NORMALISED RATIO INCREASED [None]
  - MYOSITIS [None]
